FAERS Safety Report 8713399 (Version 2)
Quarter: 2012Q4

REPORT INFORMATION
  Report Type: 
  Country: US (occurrence: US)
  Receive Date: 20120808
  Receipt Date: 20120925
  Transmission Date: 20130627
  Serious: Yes (Other)
  Sender: FDA-Public Use
  Company Number: US-GLAXOSMITHKLINE-A0988094A

PATIENT
  Sex: Female

DRUGS (9)
  1. ADVAIR [Suspect]
     Indication: ASTHMA
     Dosage: 1PUFF Twice per day
     Route: 055
     Dates: start: 2012
  2. BIRTH CONTROL [Concomitant]
  3. SINGULAIR [Concomitant]
  4. CLONAZEPAM [Concomitant]
  5. CYMBALTA [Concomitant]
  6. ROPINIROLE [Concomitant]
  7. OLANZAPINE [Concomitant]
  8. CELEBREX [Concomitant]
  9. PROAIR HFA [Concomitant]
     Route: 055

REACTIONS (2)
  - Asthma [Unknown]
  - Product quality issue [Unknown]
